FAERS Safety Report 8357990-4 (Version None)
Quarter: 2012Q2

REPORT INFORMATION
  Report Type: 
  Country: None (occurrence: None)
  Receive Date: 20120514
  Receipt Date: 20120301
  Transmission Date: 20120825
  Serious: Yes (Hospitalization)
  Sender: FDA-Public Use
  Company Number: RU-BAYER-2012-020672

PATIENT
  Age: 64 Year
  Sex: Female

DRUGS (2)
  1. ASPIRIN [Suspect]
  2. CORINFAR [Concomitant]

REACTIONS (2)
  - URTICARIA [None]
  - BRONCHOSPASM [None]
